FAERS Safety Report 4694724-9 (Version None)
Quarter: 2005Q2

REPORT INFORMATION
  Report Type: 
  Country: None (occurrence: None)
  Receive Date: 20050617
  Receipt Date: 20050613
  Transmission Date: 20051028
  Serious: Yes (Other)
  Sender: FDA-Public Use
  Company Number: 200416171BCC

PATIENT
  Age: 74 Year
  Sex: Female
  Weight: 66.6788 kg

DRUGS (19)
  1. ALEVE [Suspect]
     Indication: ANALGESIC EFFECT
     Dosage: 220 MG BID ORAL
     Route: 048
  2. ASPIRIN [Concomitant]
  3. ADVAIR [Concomitant]
  4. AVOXYL [Concomitant]
  5. ISOSORBIDE [Concomitant]
  6. METHOTREXATE [Concomitant]
  7. FOSAMAX [Concomitant]
  8. CIMETIDINE [Concomitant]
  9. FOLIC ACID [Concomitant]
  10. LASIX [Concomitant]
  11. LEVOXYL [Concomitant]
  12. VITAMIN E [Concomitant]
  13. MULTIVITAMIN [Concomitant]
  14. CALCIUM GLUCONATE [Concomitant]
  15. PREMARIN [Concomitant]
  16. GLUCOSAMINE [Concomitant]
  17. ALLEGRA [Concomitant]
  18. PREDNISONE TAB [Concomitant]
  19. VICODIN [Concomitant]

REACTIONS (3)
  - ATRIOVENTRICULAR BLOCK [None]
  - CARDIAC DISORDER [None]
  - HYPERSENSITIVITY [None]
